FAERS Safety Report 5006343-5 (Version None)
Quarter: 2006Q2

REPORT INFORMATION
  Report Type: 
  Country: None (occurrence: None)
  Receive Date: 20060519
  Receipt Date: 20060515
  Transmission Date: 20061013
  Serious: Yes (Death)
  Sender: FDA-Public Use
  Company Number: JP-JNJFOC-20050906774

PATIENT
  Sex: Male

DRUGS (13)
  1. DUROTEP [Suspect]
     Indication: CANCER PAIN
     Route: 062
  2. ACETAMINOPHEN [Concomitant]
     Indication: CANCER PAIN
     Route: 048
  3. BIFIDOBACTERIUM [Concomitant]
     Indication: CONSTIPATION
     Route: 048
  4. MAGNESIUM OXIDE [Concomitant]
     Indication: CONSTIPATION
     Route: 048
  5. MOSAPRIDE CITRATE [Concomitant]
     Indication: CONSTIPATION
     Route: 048
  6. RILMAZAFONE HYDROCHLORIDE [Concomitant]
     Indication: INSOMNIA
     Route: 048
  7. SENNOSIDE - HERBAL PREPARATION [Concomitant]
     Indication: CONSTIPATION
     Route: 048
  8. SODIUM PICOSULFATE [Concomitant]
     Indication: CONSTIPATION
     Route: 048
  9. DICLOFENAC SODIUM [Concomitant]
     Indication: CANCER PAIN
     Route: 054
  10. ALPRAZOLAM [Concomitant]
     Route: 048
  11. MORPHINE SULFATE [Concomitant]
     Route: 048
  12. MORPHINE SULFATE [Concomitant]
     Route: 048
  13. MORPHINE SULFATE [Concomitant]
     Indication: CANCER PAIN
     Route: 048

REACTIONS (3)
  - DIPLOPIA [None]
  - GASTRIC CANCER [None]
  - VISION BLURRED [None]
